FAERS Safety Report 7508734-7 (Version None)
Quarter: 2011Q2

REPORT INFORMATION
  Report Type: 
  Country: None (occurrence: None)
  Receive Date: 20110519
  Receipt Date: 20110503
  Transmission Date: 20111010
  Serious: Yes (Hospitalization, Other)
  Sender: FDA-Public Use
  Company Number: LTI2011A00035

PATIENT
  Age: 72 Year
  Sex: Male

DRUGS (8)
  1. EZETIMIBE/SIMVASTATIN [Concomitant]
  2. INDAPAMIDE [Concomitant]
  3. COMPETACT (PIOGLITAZONE HYDROCHLORIDE, METFORMIN HYDROCHLORIDE) [Suspect]
     Indication: TYPE 2 DIABETES MELLITUS
     Dosage: 1 TAB. (1 TAB., 1 IN 1 D), ORAL
     Route: 048
     Dates: start: 20070618, end: 20110429
  4. SECTRAL [Concomitant]
  5. PLAVIX [Concomitant]
  6. RAMIPRIL [Concomitant]
  7. ACTOS [Suspect]
     Indication: TYPE 2 DIABETES MELLITUS
     Dosage: 15 MG (15 MG, 1 IN 1 D), ORAL
     Route: 048
     Dates: start: 20080810, end: 20110429
  8. NOVONORM (REPAGLINIDE) [Concomitant]

REACTIONS (2)
  - HAEMATURIA [None]
  - BLADDER TRANSITIONAL CELL CARCINOMA [None]
